FAERS Safety Report 14255261 (Version 1)
Quarter: 2017Q4

REPORT INFORMATION
  Report Type: Spontaneous
  Country: IT (occurrence: IT)
  Receive Date: 20171206
  Receipt Date: 20171206
  Transmission Date: 20180321
  Serious: Yes (Death, Other)
  Sender: FDA-Public Use
  Company Number: IT-ROCHE-2030223

PATIENT
  Sex: Male
  Weight: 1.25 kg

DRUGS (3)
  1. GANCICLOVIR. [Suspect]
     Active Substance: GANCICLOVIR
     Indication: CYTOMEGALOVIRUS INFECTION
     Dosage: BY SLOW INFUSION (} 10 MIN) INTO THE UMBILICAL VEIN AT ITS PLACENTAL INSERTION OR INTRAHEPATIC PORTI
     Route: 042
  2. GANCICLOVIR. [Suspect]
     Active Substance: GANCICLOVIR
     Dosage: BY SLOW INFUSION (} 10 MIN) INTO THE UMBILICAL VEIN AT ITS PLACENTAL INSERTION OR INTRAHEPATIC PORTI
     Route: 042
  3. GANCICLOVIR. [Suspect]
     Active Substance: GANCICLOVIR
     Dosage: BY SLOW INFUSION (} 10 MIN) INTO THE UMBILICAL VEIN AT ITS PLACENTAL INSERTION OR INTRAHEPATIC PORTI
     Route: 042

REACTIONS (9)
  - Renal injury [Unknown]
  - Foetal growth restriction [Unknown]
  - Foetal distress syndrome [Fatal]
  - Bradycardia [Unknown]
  - Aspartate aminotransferase increased [Unknown]
  - Nucleated red cells [Unknown]
  - Foetal hypokinesia [Unknown]
  - Alanine aminotransferase increased [Unknown]
  - Foetal exposure during pregnancy [Unknown]
